FAERS Safety Report 6339035-0 (Version None)
Quarter: 2009Q3

REPORT INFORMATION
  Report Type: 
  Country: None (occurrence: None)
  Receive Date: 20090903
  Receipt Date: 20090826
  Transmission Date: 20100115
  Serious: Yes (Hospitalization)
  Sender: FDA-Public Use
  Company Number: JP-ALLERGAN-0912146US

PATIENT
  Sex: Female

DRUGS (6)
  1. ALESION TABLET [Suspect]
     Indication: DRUG USE FOR UNKNOWN INDICATION
     Route: 048
  2. EVISTA [Concomitant]
     Route: 048
  3. MUCODYNE [Concomitant]
     Route: 048
  4. CLARITH [Concomitant]
     Route: 048
  5. ONON [Concomitant]
     Route: 048
  6. MEVALOTIN [Concomitant]
     Route: 048

REACTIONS (2)
  - ALANINE AMINOTRANSFERASE INCREASED [None]
  - ASPARTATE AMINOTRANSFERASE INCREASED [None]
